FAERS Safety Report 8419429-X (Version None)
Quarter: 2012Q2

REPORT INFORMATION
  Report Type: 
  Country: None (occurrence: None)
  Receive Date: 20120607
  Receipt Date: 20120531
  Transmission Date: 20120825
  Serious: Yes (Other)
  Sender: FDA-Public Use
  Company Number: JP-GLAXOSMITHKLINE-B0600763A

PATIENT
  Sex: Male

DRUGS (4)
  1. MENEST [Concomitant]
     Dosage: 300MG PER DAY
     Route: 048
  2. PERMAX [Concomitant]
     Dosage: 500MCG PER DAY
     Route: 048
     Dates: start: 20020101, end: 20070709
  3. REQUIP [Suspect]
     Indication: PARKINSON'S DISEASE
     Dosage: 9MG PER DAY
     Route: 048
     Dates: start: 20071016
  4. PRAMIPEXOLE DIHYDROCHLORIDE [Concomitant]
     Route: 048
     Dates: start: 20070801, end: 20071001

REACTIONS (3)
  - SURFACTANT PROTEIN INCREASED [None]
  - CELL MARKER INCREASED [None]
  - INTERSTITIAL LUNG DISEASE [None]
